FAERS Safety Report 24250090 (Version 4)
Quarter: 2024Q4

REPORT INFORMATION
  Report Type: Spontaneous
  Country: US (occurrence: US)
  Receive Date: 20240826
  Receipt Date: 20241213
  Transmission Date: 20250114
  Serious: No
  Sender: LUPIN
  Company Number: US-LUPIN PHARMACEUTICALS INC.-2024-07520

PATIENT

DRUGS (1)
  1. ALBUTEROL SULFATE [Suspect]
     Active Substance: ALBUTEROL SULFATE
     Indication: Asthma
     Dosage: UNK, QID, 2 PUFFS 4 TIMES A DAY
     Dates: start: 20240709

REACTIONS (3)
  - Wrong technique in product usage process [Unknown]
  - Drug dose omission by device [Unknown]
  - No adverse event [Unknown]
